FAERS Safety Report 4660075-1 (Version None)
Quarter: 2005Q2

REPORT INFORMATION
  Report Type: 
  Country: None (occurrence: None)
  Receive Date: 20050512
  Receipt Date: 20050309
  Transmission Date: 20051028
  Serious: No
  Sender: FDA-Public Use
  Company Number: US-GLAXOSMITHKLINE-A0549025A

PATIENT
  Age: 59 Year
  Sex: Female

DRUGS (5)
  1. RELAFEN [Suspect]
     Dosage: 500MG PER DAY
     Route: 048
     Dates: end: 20040501
  2. GLUCOTROL [Concomitant]
  3. IMDUR [Concomitant]
  4. LASIX [Concomitant]
  5. ISOSORBIDE [Concomitant]

REACTIONS (2)
  - PRURITUS [None]
  - RASH [None]
